FAERS Safety Report 4646718-7 (Version None)
Quarter: 2005Q2

REPORT INFORMATION
  Report Type: 
  Country: None (occurrence: None)
  Receive Date: 20050427
  Receipt Date: 20030522
  Transmission Date: 20051028
  Serious: Yes (Hospitalization, Other)
  Sender: FDA-Public Use
  Company Number: JP-GLAXOSMITHKLINE-B0300550A

PATIENT
  Age: 68 Year
  Sex: Male
  Weight: 90 kg

DRUGS (6)
  1. VALTREX [Suspect]
     Indication: HERPES ZOSTER
     Dosage: 3G PER DAY
     Route: 048
     Dates: start: 20030514, end: 20030515
  2. ZOVIRAX [Suspect]
     Indication: HERPES ZOSTER
     Dosage: 500MG PER DAY
     Route: 042
     Dates: start: 20030516, end: 20030517
  3. GLICLAZIDE [Suspect]
     Indication: DIABETES MELLITUS
     Dosage: 40MG PER DAY
     Route: 048
  4. MECOBALAMIN [Concomitant]
     Indication: HERPES ZOSTER
     Dosage: 1.5MG PER DAY
     Route: 048
     Dates: start: 20030514, end: 20030515
  5. UFENAMATE [Concomitant]
     Indication: HERPES ZOSTER
     Route: 061
     Dates: start: 20030514, end: 20030515
  6. MECOBALAMIN [Concomitant]
     Dosage: 500MCG PER DAY
     Route: 042
     Dates: start: 20030514, end: 20030514

REACTIONS (6)
  - ABNORMAL BEHAVIOUR [None]
  - AGITATION [None]
  - CSF CELL COUNT INCREASED [None]
  - DEPRESSED LEVEL OF CONSCIOUSNESS [None]
  - ENCEPHALITIS VIRAL [None]
  - TOXIC INDUCED ENCEPHALOPATHY [None]
